FAERS Safety Report 5487165-8 (Version None)
Quarter: 2007Q3

REPORT INFORMATION
  Report Type: 
  Country: None (occurrence: None)
  Receive Date: 20070925
  Receipt Date: 20070726
  Transmission Date: 20080115
  Serious: No
  Sender: FDA-Public Use
  Company Number: 2007US001294

PATIENT
  Age: 31 Year
  Sex: Female

DRUGS (5)
  1. VESICARE [Suspect]
     Indication: DRUG USE FOR UNKNOWN INDICATION
     Dosage: 5 MG, BID, ORAL; 10 MG, UID/QD
     Route: 048
     Dates: start: 20070101, end: 20070101
  2. VESICARE [Suspect]
     Indication: DRUG USE FOR UNKNOWN INDICATION
     Dosage: 5 MG, BID, ORAL; 10 MG, UID/QD
     Route: 048
     Dates: start: 20070301, end: 20070301
  3. PREDNISONE TAB [Concomitant]
  4. CONTRACEPTIVES NOS [Concomitant]
  5. MULTIVITAMINS (ERGOCALCIFEROL, FOLIC ACID, RETINOL, ASCORBIC ACID, PAN [Concomitant]

REACTIONS (3)
  - DIARRHOEA [None]
  - NAUSEA [None]
  - VOMITING [None]
